FAERS Safety Report 5317388-X (Version None)
Quarter: 2007Q2

REPORT INFORMATION
  Report Type: 
  Country: None (occurrence: None)
  Receive Date: 20070504
  Receipt Date: 20070424
  Transmission Date: 20071010
  Serious: Yes (Other)
  Sender: FDA-Public Use
  Company Number: US-ABBOTT-07P-163-0365957-00

PATIENT
  Age: 17 Year
  Sex: Male
  Weight: 52 kg

DRUGS (4)
  1. PARICALCITOL [Suspect]
     Indication: HYPOCALCAEMIA
     Route: 042
  2. CALCIUM CARBONATE [Concomitant]
     Indication: HYPOCALCAEMIA
     Dosage: NOT REPORTED
  3. CALCIUM CARBONATE [Concomitant]
  4. CALCIUM CHLORIDE [Concomitant]
     Indication: HYPOCALCAEMIA
     Dosage: 1.8 MMOL/L (3.5 MEQ/L), 3 IN 1 WK
     Route: 010

REACTIONS (1)
  - OSTEOMALACIA [None]
